FAERS Safety Report 6005765-3 (Version None)
Quarter: 2008Q4

REPORT INFORMATION
  Report Type: 
  Country: None (occurrence: None)
  Receive Date: 20081217
  Receipt Date: 20080728
  Transmission Date: 20090506
  Serious: Yes (Other)
  Sender: FDA-Public Use
  Company Number: BR-PFIZER INC-2008064052

PATIENT

DRUGS (1)
  1. VIAGRA [Suspect]
     Indication: ERECTILE DYSFUNCTION
     Dosage: 50MG 1X/DAY PRN TDD:50MG
     Route: 048

REACTIONS (3)
  - HAEMATEMESIS [None]
  - OESOPHAGEAL DISCOMFORT [None]
  - OROPHARYNGEAL PAIN [None]
